FAERS Safety Report 7130716-8 (Version None)
Quarter: 2010Q4

REPORT INFORMATION
  Report Type: 
  Country: None (occurrence: None)
  Receive Date: 20101201
  Receipt Date: 20101119
  Transmission Date: 20110411
  Serious: Yes (Other)
  Sender: FDA-Public Use
  Company Number: US-ROCHE-718631

PATIENT
  Sex: Female
  Weight: 56.7 kg

DRUGS (5)
  1. ACCUTANE [Suspect]
     Indication: ACNE
     Route: 065
     Dates: start: 19980901, end: 19990101
  2. ACCUTANE [Suspect]
     Route: 065
     Dates: start: 20000501, end: 20000704
  3. ACCUTANE [Suspect]
     Route: 065
     Dates: start: 20000705, end: 20000824
  4. ACCUTANE [Suspect]
     Route: 065
     Dates: start: 20000924, end: 20001101
  5. ORTHO TRI-CYCLEN [Concomitant]

REACTIONS (10)
  - COLITIS ULCERATIVE [None]
  - DERMAL CYST [None]
  - DRY EYE [None]
  - DRY SKIN [None]
  - EMOTIONAL DISTRESS [None]
  - GALLBLADDER DISORDER [None]
  - GASTROINTESTINAL INJURY [None]
  - INTESTINAL OBSTRUCTION [None]
  - LIP DRY [None]
  - SCOLIOSIS [None]
